FAERS Safety Report 14178843 (Version 3)
Quarter: 2018Q2

REPORT INFORMATION
  Report Type: Spontaneous
  Country: JP (occurrence: JP)
  Receive Date: 20171110
  Receipt Date: 20180417
  Transmission Date: 20180711
  Serious: Yes (Death, Life-Threatening)
  Sender: FDA-Public Use
  Company Number: JP-JNJFOC-20171109030

PATIENT
  Age: 65 Year
  Sex: Female
  Weight: 62 kg

DRUGS (13)
  1. TRAMCET [Suspect]
     Active Substance: ACETAMINOPHEN\TRAMADOL
     Indication: OROPHARYNGEAL PAIN
     Route: 048
  2. LIXIANA [Concomitant]
     Active Substance: EDOXABAN TOSYLATE
     Indication: SUBCLAVIAN VEIN THROMBOSIS
     Route: 048
  3. CARVEDILOL. [Concomitant]
     Active Substance: CARVEDILOL
     Indication: CARDIAC FAILURE CONGESTIVE
     Route: 048
  4. LYRICA [Concomitant]
     Active Substance: PREGABALIN
     Indication: TROPICAL SPASTIC PARESIS
     Route: 048
  5. BEZATOL [Concomitant]
     Active Substance: BEZAFIBRATE
     Indication: HYPERLIPIDAEMIA
     Route: 048
  6. TRAMCET [Suspect]
     Active Substance: ACETAMINOPHEN\TRAMADOL
     Indication: OROPHARYNGEAL PAIN
     Route: 048
     Dates: start: 20170411
  7. FEBURIC [Concomitant]
     Active Substance: FEBUXOSTAT
     Indication: PAIN
     Route: 048
  8. FOSAMAC [Concomitant]
     Active Substance: ALENDRONATE SODIUM
     Indication: PRIMARY MYELOFIBROSIS
     Route: 048
  9. PREDONINE [Concomitant]
     Active Substance: PREDNISOLONE
     Indication: TROPICAL SPASTIC PARESIS
     Route: 065
  10. LIORESAL [Concomitant]
     Active Substance: BACLOFEN
     Indication: TROPICAL SPASTIC PARESIS
     Route: 048
  11. LUPRAC [Concomitant]
     Active Substance: TORSEMIDE
     Indication: CARDIAC FAILURE CONGESTIVE
     Route: 048
  12. NEXIUM [Concomitant]
     Active Substance: ESOMEPRAZOLE MAGNESIUM
     Route: 048
  13. DAIPHEN [Concomitant]
     Active Substance: SULFAMETHOXAZOLE\TRIMETHOPRIM
     Route: 048

REACTIONS (4)
  - Cardiogenic shock [Fatal]
  - Cardiac arrest [Fatal]
  - Tonic convulsion [Fatal]
  - Overdose [Fatal]

NARRATIVE: CASE EVENT DATE: 20170411
